FAERS Safety Report 9641775 (Version 1)
Quarter: 2013Q4

REPORT INFORMATION
  Report Type: Spontaneous
  Country: AU (occurrence: None)
  Receive Date: 20131021
  Receipt Date: 20131021
  Transmission Date: 20140711
  Serious: Yes (Other)
  Sender: FDA-Public Use
  Company Number: 1952876

PATIENT
  Age: 35 Year
  Sex: Male

DRUGS (6)
  1. VINCRISTINE SULFATE [Suspect]
     Indication: CHEMOTHERAPY
  2. CLOZAPINE [Suspect]
     Indication: SCHIZOPHRENIA
     Route: 048
     Dates: start: 20041104
  3. DOXORUBICIN HYDROCHLORIDE [Suspect]
     Indication: CHEMOTHERAPY
  4. RITUXIMAB [Suspect]
     Indication: CHEMOTHERAPY
  5. CYCLOPHOSPHAMIDE [Suspect]
     Indication: CHEMOTHERAPY
  6. PREDNISONE [Suspect]
     Indication: CHEMOTHERAPY

REACTIONS (7)
  - Neutropenia [None]
  - White blood cell count decreased [None]
  - B-cell lymphoma [None]
  - Lethargy [None]
  - Bone pain [None]
  - Productive cough [None]
  - Dehydration [None]
